FAERS Safety Report 7056541-4 (Version None)
Quarter: 2010Q4

REPORT INFORMATION
  Report Type: 
  Country: None (occurrence: None)
  Receive Date: 20101018
  Receipt Date: 20101012
  Transmission Date: 20110411
  Serious: Yes (Hospitalization)
  Sender: FDA-Public Use
  Company Number: GB-GDP-10409145

PATIENT
  Age: 89 Year
  Sex: Male

DRUGS (5)
  1. DOXYCYCLINE [Suspect]
     Indication: PRODUCT USED FOR UNKNOWN INDICATION
     Dosage: (ORAL)
     Route: 048
     Dates: start: 20100922, end: 20100928
  2. GLICLAZIDE [Concomitant]
  3. RAMIPRIL [Concomitant]
  4. PARACETAMOL [Concomitant]
  5. TRAMADOL HCL [Concomitant]

REACTIONS (2)
  - BLOOD ALKALINE PHOSPHATASE INCREASED [None]
  - GAMMA-GLUTAMYLTRANSFERASE INCREASED [None]
